FAERS Safety Report 7625918-8 (Version None)
Quarter: 2011Q3

REPORT INFORMATION
  Report Type: 
  Country: None (occurrence: None)
  Receive Date: 20110721
  Receipt Date: 20110721
  Transmission Date: 20111222
  Serious: No
  Sender: FDA-Public Use
  Company Number: None

PATIENT
  Sex: Female
  Weight: 68.946 kg

DRUGS (2)
  1. ACTONEL [Suspect]
     Indication: OSTEOPENIA
     Dosage: 35 MG
     Route: 048
     Dates: start: 20110610, end: 20110720
  2. FOSAMAX [Concomitant]
     Indication: OSTEOPENIA
     Dosage: 70 MG
     Route: 048
     Dates: start: 20101201, end: 20101220

REACTIONS (1)
  - MYALGIA [None]
